FAERS Safety Report 21511166 (Version 2)
Quarter: 2022Q4

REPORT INFORMATION
  Report Type: Other
  Country: US (occurrence: None)
  Receive Date: 20221027
  Receipt Date: 20221130
  Transmission Date: 20230113
  Serious: Yes (Other)
  Sender: FDA-Public Use
  Company Number: US-ROCHE-3036640

PATIENT
  Age: 79 Year
  Sex: Female

DRUGS (7)
  1. ACTEMRA [Suspect]
     Active Substance: TOCILIZUMAB
     Indication: Giant cell arteritis
     Dosage: INJECT 162MG SUBCUTANEOUSLY EVERY OTHER WEEK
     Route: 058
  2. ACTEMRA [Suspect]
     Active Substance: TOCILIZUMAB
     Indication: Polymyalgia rheumatica
  3. ACTEMRA [Suspect]
     Active Substance: TOCILIZUMAB
     Indication: Anaemia
  4. ACTEMRA [Suspect]
     Active Substance: TOCILIZUMAB
     Indication: Cardiac murmur
  5. ACTEMRA [Suspect]
     Active Substance: TOCILIZUMAB
     Indication: Myeloproliferative neoplasm
  6. ACTEMRA [Suspect]
     Active Substance: TOCILIZUMAB
     Indication: Leukocytosis
  7. ACTEMRA [Suspect]
     Active Substance: TOCILIZUMAB
     Indication: Autoimmune disorder

REACTIONS (2)
  - Blindness unilateral [Unknown]
  - Blindness [Unknown]
